FAERS Safety Report 7219130-4 (Version None)
Quarter: 2011Q1

REPORT INFORMATION
  Report Type: 
  Country: None (occurrence: None)
  Receive Date: 20110111
  Receipt Date: 20101228
  Transmission Date: 20110831
  Serious: Yes (Other)
  Sender: FDA-Public Use
  Company Number: US-CELGENEUS-163-21880-11010220

PATIENT
  Sex: Male

DRUGS (3)
  1. REVLIMID [Suspect]
     Route: 048
     Dates: start: 20091201
  2. REVLIMID [Suspect]
     Route: 048
     Dates: start: 20090301
  3. CIPROFLAXACIN [Concomitant]
     Indication: INFECTION PROPHYLAXIS
     Route: 065

REACTIONS (1)
  - NEOPLASM MALIGNANT [None]
